FAERS Safety Report 5474894-5 (Version None)
Quarter: 2007Q3

REPORT INFORMATION
  Report Type: 
  Country: None (occurrence: None)
  Receive Date: 20070831
  Receipt Date: 20070508
  Transmission Date: 20080115
  Serious: No
  Sender: FDA-Public Use
  Company Number: 239323

PATIENT
  Age: 70 Year
  Sex: Male

DRUGS (9)
  1. LUCENTIS [Suspect]
     Indication: MACULAR DEGENERATION
     Dosage: 0.5 MG, INTRAVITREAL
     Dates: start: 20070326
  2. HYZAAR [Concomitant]
  3. CADUET (AMLODIPINE BESYLATE, ATORVASTATIN CALCIUM) [Concomitant]
  4. TOPROL-XL [Concomitant]
  5. RANITIDINE [Concomitant]
  6. ASPIRIN [Concomitant]
  7. OCUVITE (ASCROBIC ACID, BETA CAROTENE, COPPER NOS, LUTEIN, SELENIUM NO [Concomitant]
  8. VITAMIN (VITAMIN NOS) [Concomitant]
  9. CALCIUM (CALCIUM NOS) [Concomitant]

REACTIONS (1)
  - BLOOD PRESSURE INCREASED [None]
